FAERS Safety Report 8926040 (Version 2)
Quarter: 2013Q1

REPORT INFORMATION
  Report Type: Report from Study
  Country: US (occurrence: US)
  Receive Date: 20121126
  Receipt Date: 20130228
  Transmission Date: 20140127
  Serious: Yes (Hospitalization)
  Sender: FDA-Public Use
  Company Number: US-BAYER-2012-122477

PATIENT
  Age: 75 Year
  Sex: Male

DRUGS (16)
  1. BAYER GENUINE ASPIRIN ORIGINAL STRENGTH [Suspect]
  2. SAXAGLIPTIN [Suspect]
     Indication: TYPE 2 DIABETES MELLITUS
     Dosage: UNK
     Dates: start: 20110118, end: 20130117
  3. NOVOLIN 70/30 [Suspect]
     Indication: TYPE 2 DIABETES MELLITUS
  4. METFORMIN HCL [Suspect]
     Indication: TYPE 2 DIABETES MELLITUS
     Dosage: UNK
     Dates: end: 20121029
  5. METFORMIN HCL [Suspect]
     Indication: TYPE 2 DIABETES MELLITUS
     Dosage: UNK
  6. LANTUS [Suspect]
     Indication: TYPE 2 DIABETES MELLITUS
  7. PLACEBO [Suspect]
     Indication: TYPE 2 DIABETES MELLITUS
     Dosage: UNK
     Dates: start: 20110118
  8. ROCEPHIN [Concomitant]
     Dosage: UNK
     Dates: start: 20110219
  9. LEVAQUIN [Concomitant]
     Dosage: UNK
     Dates: start: 20110219
  10. OXYGEN [Concomitant]
     Dosage: UNK
     Dates: start: 20110218
  11. LASIX [Concomitant]
     Dosage: UNK
     Dates: start: 20110220
  12. CIPROFLOXACIN [Concomitant]
     Dosage: UNK
     Dates: start: 20110923, end: 20111002
  13. STATIN [Concomitant]
  14. ACE INHIBITOR NOS [Concomitant]
  15. DIURETICS [Concomitant]
  16. ALPHA-ADRENOCEPTOR BLOCKING AGENTS [Concomitant]

REACTIONS (14)
  - Fatigue [Recovered/Resolved]
  - Gastrointestinal haemorrhage [Recovered/Resolved]
  - Diarrhoea [None]
  - Constipation [None]
  - Weight decreased [None]
  - Haemoglobin decreased [None]
  - Pneumonia [Recovered/Resolved]
  - Dyspnoea [Recovered/Resolved]
  - Wheezing [Recovered/Resolved]
  - Anaemia [Recovered/Resolved]
  - Asthenia [Recovered/Resolved]
  - Tachycardia [Recovered/Resolved]
  - Toxic nodular goitre [Recovered/Resolved]
  - Decreased appetite [None]
